FAERS Safety Report 8138506 (Version 5)
Quarter: 2014Q4

REPORT INFORMATION
  Report Type: Spontaneous
  Country: US (occurrence: US)
  Receive Date: 20110915
  Receipt Date: 20141209
  Transmission Date: 20150529
  Serious: Yes (Hospitalization, Other)
  Sender: FDA-Public Use
  Company Number: US-ASTRAZENECA-2010SE31401

PATIENT
  Age: 54 Year
  Sex: Female

DRUGS (26)
  1. VITAMIN D [Concomitant]
     Active Substance: CHOLECALCIFEROL
     Dosage: 50000 UNIT DAILY
  2. MIACALCIN [Concomitant]
     Active Substance: CALCITONIN SALMON
     Dosage: SPRAY DAILY
  3. FLUOXETINE [Concomitant]
     Active Substance: FLUOXETINE\FLUOXETINE HYDROCHLORIDE
  4. GABAPENTIN. [Concomitant]
     Active Substance: GABAPENTIN
  5. SKELAXIN [Concomitant]
     Active Substance: METAXALONE
  6. TEMAZEPAM. [Concomitant]
     Active Substance: TEMAZEPAM
  7. NEXIUM [Suspect]
     Active Substance: ESOMEPRAZOLE MAGNESIUM
     Indication: GASTROOESOPHAGEAL REFLUX DISEASE
     Route: 048
     Dates: start: 2009
  8. CYCLOBENZAPR [Concomitant]
  9. OGESTREL [Concomitant]
     Active Substance: ETHINYL ESTRADIOL\NORGESTREL
     Dosage: DAILY
  10. MECLIZINE [Concomitant]
     Active Substance: MECLIZINE\MECLIZINE HYDROCHLORIDE
  11. ZEGERID [Concomitant]
     Active Substance: OMEPRAZOLE\SODIUM BICARBONATE
  12. FASTIN [Concomitant]
     Active Substance: PHENTERMINE HYDROCHLORIDE
  13. NEXIUM [Suspect]
     Active Substance: ESOMEPRAZOLE MAGNESIUM
     Indication: GASTROOESOPHAGEAL REFLUX DISEASE
     Route: 048
  14. CRESTOR [Suspect]
     Active Substance: ROSUVASTATIN CALCIUM
     Indication: HYPERCHOLESTEROLAEMIA
     Route: 048
     Dates: start: 2006
  15. ALPRAZOLM [Concomitant]
     Dosage: 0.5 THREE TIMES A DAY
  16. ETODOLAC. [Concomitant]
     Active Substance: ETODOLAC
  17. LISINOPRIL. [Suspect]
     Active Substance: LISINOPRIL
     Route: 048
  18. WELCHOL [Concomitant]
     Active Substance: COLESEVELAM HYDROCHLORIDE
  19. CRESTOR [Suspect]
     Active Substance: ROSUVASTATIN CALCIUM
     Indication: HYPERLIPIDAEMIA
     Route: 048
     Dates: start: 2006
  20. FUROSEMIDE. [Concomitant]
     Active Substance: FUROSEMIDE
  21. PATANASE [Concomitant]
     Active Substance: OLOPATADINE HYDROCHLORIDE
     Dosage: 0.6 / SPRAY DAILY
  22. PROAIR HFA [Concomitant]
     Active Substance: ALBUTEROL SULFATE
     Dosage: 4 SPRAYS DAILY
  23. SYMBICORT [Suspect]
     Active Substance: BUDESONIDE\FORMOTEROL FUMARATE DIHYDRATE
     Indication: ASTHMA
     Dosage: 160/4.5, 2 SPRAY AT NIGHT AND MORNING
     Route: 055
     Dates: start: 2009
  24. LISINOPRIL HCTZ [Suspect]
     Active Substance: HYDROCHLOROTHIAZIDE\LISINOPRIL
     Dosage: 20/12.5 EVERY MORNING
     Route: 048
  25. IBUPROFEN. [Concomitant]
     Active Substance: IBUPROFEN
  26. KLO-CON [Concomitant]

REACTIONS (16)
  - Cardiac disorder [Unknown]
  - Lumbar spinal stenosis [Unknown]
  - Blood cholesterol increased [Unknown]
  - Off label use [Unknown]
  - Asthenia [Unknown]
  - Heart injury [Unknown]
  - Asthma [Unknown]
  - Arthritis [Unknown]
  - Gastrooesophageal reflux disease [Unknown]
  - Fibromyalgia [Unknown]
  - Hypertension [Unknown]
  - Intentional product misuse [Not Recovered/Not Resolved]
  - Drug dose omission [Not Recovered/Not Resolved]
  - Myocardial infarction [Unknown]
  - Malaise [Not Recovered/Not Resolved]
  - Spinal column stenosis [Unknown]

NARRATIVE: CASE EVENT DATE: 201011
